FAERS Safety Report 9225556 (Version 1)
Quarter: 2013Q2

REPORT INFORMATION
  Report Type: Spontaneous
  Country: US (occurrence: None)
  Receive Date: 20130410
  Receipt Date: 20130410
  Transmission Date: 20140414
  Serious: Yes (Other)
  Sender: FDA-Public Use
  Company Number: None

PATIENT
  Age: 64 Year
  Sex: Male
  Weight: 85.28 kg

DRUGS (15)
  1. BUPROPION [Suspect]
     Indication: DEPRESSION
     Route: 048
     Dates: start: 20121110, end: 20130409
  2. BUPROPION [Suspect]
     Indication: ARTHRALGIA
     Route: 048
     Dates: start: 20121110, end: 20130409
  3. QUINAPRIL [Concomitant]
  4. HYDROXYZINE [Concomitant]
  5. CHLORPHENIRAMINE [Concomitant]
  6. COLCHICINE [Concomitant]
  7. CARVEDILOL [Concomitant]
  8. TRAZODONE [Concomitant]
  9. ETHYCRYNIC ACID [Concomitant]
  10. CYCLOBENZAPRINE [Concomitant]
  11. FUROSEMIDE [Concomitant]
  12. INSULIN DETEMIR [Concomitant]
  13. METOCLOPRAMIDE [Concomitant]
  14. SULFASALAZINE [Concomitant]
  15. BUPROPION [Concomitant]

REACTIONS (4)
  - Hypersomnia [None]
  - Product substitution issue [None]
  - Arthralgia [None]
  - Depression [None]
